FAERS Safety Report 7814322-5 (Version None)
Quarter: 2011Q4

REPORT INFORMATION
  Report Type: 
  Country: None (occurrence: None)
  Receive Date: 20111011
  Receipt Date: 20110927
  Transmission Date: 20120403
  Serious: No
  Sender: FDA-Public Use
  Company Number: 2011-01290

PATIENT
  Age: 81 Year
  Sex: Female

DRUGS (4)
  1. ZICAM COLD REMEDY LIQUI-LOZ [Suspect]
     Dosage: 3-4 LOZENGES/2 DAYS
     Dates: start: 20110926, end: 20110927
  2. GENERIC FOR LIBRAX [Concomitant]
  3. NEXIUM [Concomitant]
  4. BENICAR [Concomitant]

REACTIONS (1)
  - AGEUSIA [None]
